FAERS Safety Report 8996615 (Version 2)
Quarter: 2013Q3

REPORT INFORMATION
  Report Type: Report from Study
  Country: BR (occurrence: BR)
  Receive Date: 20130104
  Receipt Date: 20130808
  Transmission Date: 20140515
  Serious: Yes (Hospitalization, Other)
  Sender: FDA-Public Use
  Company Number: BR-BAYER-2012-135883

PATIENT
  Age: 47 Year
  Sex: Female

DRUGS (2)
  1. BETAFERON [Suspect]
     Indication: MULTIPLE SCLEROSIS
     Dosage: 1 INJECTION EVERY 3 DAYS
     Route: 058
     Dates: start: 201209
  2. BETAFERON [Suspect]
     Indication: MULTIPLE SCLEROSIS
     Dosage: 1 INJECTION, OW

REACTIONS (7)
  - Urinary retention [Recovered/Resolved]
  - Inappropriate schedule of drug administration [None]
  - Multiple sclerosis [None]
  - Mobility decreased [None]
  - Bradyphrenia [None]
  - Nervousness [None]
  - Headache [Not Recovered/Not Resolved]
